FAERS Safety Report 12608807 (Version 2)
Quarter: 2016Q3

REPORT INFORMATION
  Report Type: Report from Study
  Country: UA (occurrence: UA)
  Receive Date: 20160729
  Receipt Date: 20160810
  Transmission Date: 20161109
  Serious: Yes (Hospitalization)
  Sender: FDA-Public Use
  Company Number: UA-ASTRAZENECA-2016SE81481

PATIENT
  Age: 23347 Day
  Sex: Female

DRUGS (11)
  1. ATORVASTATIN [Suspect]
     Active Substance: ATORVASTATIN
     Indication: HYPERTRIGLYCERIDAEMIA
     Route: 048
     Dates: start: 2015
  2. NOLIPREL-BI-FORTE [Concomitant]
     Indication: CARDIAC FAILURE
     Route: 048
     Dates: start: 2015
  3. ANAPRILINUM [Concomitant]
     Indication: HYPERTENSION
     Route: 048
  4. CARDIOMAGNYL [Concomitant]
     Active Substance: ASPIRIN\MAGNESIUM HYDROXIDE
     Indication: CORONARY ARTERY DISEASE
     Route: 048
     Dates: start: 2015
  5. DIMARYL [Concomitant]
     Indication: DIABETES MELLITUS
     Route: 048
     Dates: start: 20160427
  6. DIANORMET [Concomitant]
     Indication: DIABETES MELLITUS
     Route: 048
     Dates: start: 20160427
  7. LIPRAZIDUM [Concomitant]
     Indication: HYPERTENSION
     Route: 048
  8. ATORVASTATIN [Suspect]
     Active Substance: ATORVASTATIN
     Indication: CORONARY ARTERY DISEASE
     Route: 048
     Dates: start: 2015
  9. DIANORMET [Concomitant]
     Indication: DIABETES MELLITUS
     Route: 048
     Dates: start: 2015
  10. EPANOVA [Suspect]
     Active Substance: OMEGA-3-CARBOXYLIC ACIDS
     Indication: HYPERTRIGLYCERIDAEMIA
     Route: 048
     Dates: start: 20160418, end: 20160709
  11. NOLIPREL-BI-FORTE [Concomitant]
     Indication: HYPERTENSION
     Route: 048
     Dates: start: 2015

REACTIONS (1)
  - Pancreatitis acute [Recovered/Resolved]

NARRATIVE: CASE EVENT DATE: 20160710
